FAERS Safety Report 12859542 (Version 1)
Quarter: 2016Q4

REPORT INFORMATION
  Report Type: Spontaneous
  Country: US (occurrence: US)
  Receive Date: 20161018
  Receipt Date: 20161018
  Transmission Date: 20170207
  Serious: Yes (Death, Other)
  Sender: FDA-Public Use
  Company Number: US-TEVA-702844USA

PATIENT
  Age: 13 Month
  Sex: Female

DRUGS (5)
  1. METHYLPREDNISOLONE. [Suspect]
     Active Substance: METHYLPREDNISOLONE
     Indication: COOMBS POSITIVE HAEMOLYTIC ANAEMIA
     Dosage: UP TO 80 MG/DAY
     Route: 065
  2. VARICELLA ZOSTER VIRUS VACCINE [Suspect]
     Active Substance: VARICELLA-ZOSTER VIRUS STRAIN OKA/MERCK LIVE ANTIGEN
     Indication: IMMUNISATION
     Route: 065
  3. IMMUNE GLOBULIN [Concomitant]
     Active Substance: HUMAN IMMUNOGLOBULIN G
     Route: 042
  4. MEASLES, MUMPS AND RUBELLA VIRUS VACCINE [Concomitant]
     Indication: IMMUNISATION
     Route: 065
  5. HEPATITIS A VACCINE [Concomitant]
     Active Substance: HEPATITIS A VIRUS STRAIN HM175 ANTIGEN (FORMALDEHYDE INACTIVATED)
     Indication: IMMUNISATION
     Route: 065

REACTIONS (5)
  - Disseminated intravascular coagulation [Fatal]
  - Renal failure [Fatal]
  - Disseminated varicella zoster vaccine virus infection [Fatal]
  - Hepatic failure [Fatal]
  - Lymphopenia [Recovering/Resolving]
